FAERS Safety Report 5841909 (Version 2)
Quarter: 2020Q2

REPORT INFORMATION
  Report Type: Spontaneous
  Country: FR (occurrence: FR)
  Receive Date: 20050721
  Receipt Date: 20200507
  Transmission Date: 20200714
  Serious: Yes (Life-Threatening, Hospitalization, Other)
  Sender: FDA-Public Use
  Company Number: FR-GLAXOSMITHKLINE-B0388171A

PATIENT
  Age: 8 Year
  Sex: Female
  Weight: 21 kg

DRUGS (27)
  1. SOLU-MEDROL [Suspect]
     Active Substance: METHYLPREDNISOLONE SODIUM SUCCINATE
     Indication: GRAFT VERSUS HOST DISEASE
     Dosage: 10 MG
     Route: 042
     Dates: start: 20050205, end: 20050207
  2. SOLU-MEDROL [Suspect]
     Active Substance: METHYLPREDNISOLONE SODIUM SUCCINATE
     Dosage: 10 MG
     Route: 042
     Dates: start: 20050221, end: 20050221
  3. AMBISOME [Suspect]
     Active Substance: AMPHOTERICIN B
     Indication: ASPERGILLUS INFECTION
  4. SOLU-MEDROL [Suspect]
     Active Substance: METHYLPREDNISOLONE SODIUM SUCCINATE
     Dosage: 20 MG
     Route: 042
     Dates: start: 20050222, end: 20050222
  5. CYMEVAN [Suspect]
     Active Substance: GANCICLOVIR
     Indication: PROPHYLAXIS
     Dosage: UNK
     Route: 042
     Dates: start: 20050220, end: 20050222
  6. LASILIX [Concomitant]
     Active Substance: FUROSEMIDE
     Dosage: 5 MG
     Route: 042
     Dates: start: 20050221, end: 20050221
  7. POLARAMINE [Concomitant]
     Active Substance: DEXCHLORPHENIRAMINE MALEATE
     Indication: PRODUCT USED FOR UNKNOWN INDICATION
     Dosage: UNK
  8. HEPARIN SODIUM. [Concomitant]
     Active Substance: HEPARIN SODIUM
     Indication: PRODUCT USED FOR UNKNOWN INDICATION
     Dosage: UNK
  9. VANCOMYCIN [Concomitant]
     Active Substance: VANCOMYCIN
     Indication: PRODUCT USED FOR UNKNOWN INDICATION
     Dosage: UNK
  10. ZOVIRAX [Suspect]
     Active Substance: ACYCLOVIR
     Indication: PROPHYLAXIS
     Route: 065
     Dates: start: 20050216
  11. LASILIX [Concomitant]
     Active Substance: FUROSEMIDE
     Dosage: 5 MG
     Route: 042
     Dates: start: 20050214, end: 20050214
  12. LASILIX [Concomitant]
     Active Substance: FUROSEMIDE
     Dosage: 5 MG
     Route: 042
     Dates: start: 20050222, end: 20050222
  13. SANDOGLOBULIN [Concomitant]
     Active Substance: HUMAN IMMUNOGLOBULIN G
     Indication: PRODUCT USED FOR UNKNOWN INDICATION
     Dosage: UNK
  14. AMIKLIN [Suspect]
     Active Substance: AMIKACIN SULFATE
     Indication: PROPHYLAXIS
     Route: 042
     Dates: start: 20050218, end: 20050225
  15. AMBISOME [Suspect]
     Active Substance: AMPHOTERICIN B
     Indication: PROPHYLAXIS
     Dosage: UNK
     Route: 042
     Dates: start: 20050220, end: 20050225
  16. SOLU-MEDROL [Suspect]
     Active Substance: METHYLPREDNISOLONE SODIUM SUCCINATE
     Dosage: 10 MG
     Route: 042
     Dates: start: 20050212, end: 20050212
  17. SOLU-MEDROL [Suspect]
     Active Substance: METHYLPREDNISOLONE SODIUM SUCCINATE
     Dosage: 10 MG
     Route: 042
     Dates: start: 20050220, end: 20050220
  18. LASILIX [Concomitant]
     Active Substance: FUROSEMIDE
     Dosage: 5 MG
     Route: 042
     Dates: start: 20050223, end: 20050226
  19. SPASFON [PHLOROGLUCINOL;TRIMETHYLPHLOROGLUCINOL] [Concomitant]
     Active Substance: PHLOROGLUCINOL\1,3,5-TRIMETHOXYBENZENE
     Indication: PRODUCT USED FOR UNKNOWN INDICATION
     Dosage: UNK
  20. SOLU-MEDROL [Suspect]
     Active Substance: METHYLPREDNISOLONE SODIUM SUCCINATE
     Dosage: 20 MG
     Route: 042
     Dates: start: 20050223, end: 20050225
  21. LASILIX [Concomitant]
     Active Substance: FUROSEMIDE
     Indication: POLYURIA
     Dosage: 5 MG
     Route: 042
     Dates: start: 20050209, end: 20050209
  22. MORPHINE [Concomitant]
     Active Substance: MORPHINE
     Indication: PRODUCT USED FOR UNKNOWN INDICATION
     Dosage: UNK
  23. SANDIMMUN [Concomitant]
     Active Substance: CYCLOSPORINE
     Indication: PRODUCT USED FOR UNKNOWN INDICATION
     Dosage: UNK
  24. FORTUM [Suspect]
     Active Substance: CEFTAZIDIME
     Indication: PROPHYLAXIS
     Route: 042
     Dates: start: 20050218
  25. AMBISOME [Suspect]
     Active Substance: AMPHOTERICIN B
     Indication: CANDIDA INFECTION
  26. MOPRAL [Concomitant]
     Active Substance: OMEPRAZOLE
     Indication: PRODUCT USED FOR UNKNOWN INDICATION
     Dosage: UNK
  27. PERFALGAN [Concomitant]
     Active Substance: ACETAMINOPHEN
     Indication: PRODUCT USED FOR UNKNOWN INDICATION
     Dosage: UNK

REACTIONS (3)
  - Hypokalaemia [Recovered/Resolved]
  - Accidental overdose [Recovered/Resolved]
  - Bradycardia [Recovered/Resolved]

NARRATIVE: CASE EVENT DATE: 20050224
